FAERS Safety Report 14798245 (Version 2)
Quarter: 2019Q1

REPORT INFORMATION
  Report Type: Report from Study
  Country: DE (occurrence: DE)
  Receive Date: 20180424
  Receipt Date: 20190325
  Transmission Date: 20190417
  Serious: Yes (Hospitalization)
  Sender: FDA-Public Use
  Company Number: DE-ROCHE-2112468

PATIENT
  Sex: Female
  Weight: 74 kg

DRUGS (11)
  1. BEVACIZUMAB. [Suspect]
     Active Substance: BEVACIZUMAB
     Indication: BREAST CANCER
  2. PACLITAXEL. [Suspect]
     Active Substance: PACLITAXEL
     Indication: BREAST CANCER
     Dosage: LAST DOSE PRIOR TO FIRST EPISODE OF EVENT ON 07/MAY/2013 AND ?LAST DOSE PRIOR TO SECOND EPISODE OF E
     Route: 042
     Dates: start: 20130507, end: 20130507
  3. CARBOPLATIN. [Suspect]
     Active Substance: CARBOPLATIN
     Indication: BREAST CANCER
     Dosage: LAST DOSE PRIOR TO SECOND EPISODE OF EVENT ON 28/MAY/2013
     Route: 042
     Dates: start: 20130528, end: 20130528
  4. CARBOPLATIN. [Suspect]
     Active Substance: CARBOPLATIN
     Indication: OVARIAN CANCER
     Dosage: LAST DOSE PRIOR TO FIRST EPISODE OF EVENT ON 07/MAY/2013
     Route: 042
     Dates: start: 20130416, end: 20130416
  5. MACROGOL [Concomitant]
     Active Substance: POLYETHYLENE GLYCOLS
     Indication: CONSTIPATION
     Dosage: FREQUENCY- AS REQUIRED
     Route: 048
  6. CARBOPLATIN. [Suspect]
     Active Substance: CARBOPLATIN
     Route: 042
     Dates: start: 20130507, end: 20130507
  7. MACROGOL [Concomitant]
     Active Substance: POLYETHYLENE GLYCOLS
     Route: 048
  8. XARELTO [Concomitant]
     Active Substance: RIVAROXABAN
     Indication: CORONARY ARTERY DISEASE
     Route: 048
  9. BEVACIZUMAB. [Suspect]
     Active Substance: BEVACIZUMAB
     Indication: OVARIAN CANCER
     Dosage: LAST DOSE PRIOR TO FIRST EPISODE OF EVENT ON 07/MAY/2013 AND ?LAST DOSE PRIOR TO SECOND EPISODE OF E
     Route: 042
     Dates: start: 20130416, end: 20130528
  10. PACLITAXEL. [Suspect]
     Active Substance: PACLITAXEL
     Indication: OVARIAN CANCER
     Dosage: LAST DOSE PRIOR TO FIRST EPISODE OF EVENT ON 07/MAY/2013 AND ?LAST DOSE PRIOR TO SECOND EPISODE OF E
     Route: 042
     Dates: start: 20130416, end: 20130528
  11. MULTAQ [Concomitant]
     Active Substance: DRONEDARONE
     Indication: CARDIAC FAILURE
     Route: 048

REACTIONS (6)
  - Leukopenia [Recovered/Resolved]
  - Fatigue [Recovered/Resolved]
  - Pyrexia [Recovered/Resolved]
  - Pleural effusion [Unknown]
  - General physical health deterioration [Recovered/Resolved]
  - Leukopenia [Unknown]

NARRATIVE: CASE EVENT DATE: 20130512
